FAERS Safety Report 12454112 (Version 2)
Quarter: 2016Q2

REPORT INFORMATION
  Report Type: Spontaneous
  Country: NG (occurrence: NG)
  Receive Date: 20160610
  Receipt Date: 20160613
  Transmission Date: 20160815
  Serious: Yes (Death)
  Sender: FDA-Public Use
  Company Number: NG-ROCHE-1769018

PATIENT
  Age: 33 Year
  Sex: Male

DRUGS (3)
  1. ZITHROMAX [Suspect]
     Active Substance: AZITHROMYCIN DIHYDRATE
     Route: 040
     Dates: start: 20160517, end: 20160517
  2. CEFTRIAXONE. [Suspect]
     Active Substance: CEFTRIAXONE
     Indication: PNEUMONIA
     Dosage: 2G STAT
     Dates: start: 20160517, end: 20160517
  3. ZITHROMAX [Suspect]
     Active Substance: AZITHROMYCIN DIHYDRATE
     Indication: PNEUMONIA
     Dosage: 2G STAT
     Dates: start: 20160517, end: 20160517

REACTIONS (5)
  - Conversion disorder [Fatal]
  - Palpitations [Fatal]
  - Loss of consciousness [Fatal]
  - Hyperhidrosis [Recovered/Resolved]
  - Nasopharyngitis [Unknown]

NARRATIVE: CASE EVENT DATE: 20160517
